FAERS Safety Report 9989593 (Version 1)
Quarter: 2014Q1

REPORT INFORMATION
  Report Type: Spontaneous
  Country: US (occurrence: None)
  Receive Date: 20140123
  Receipt Date: 20140123
  Transmission Date: 20141002
  Serious: Yes (Hospitalization)
  Sender: FDA-Public Use
  Company Number: UTC-039088

PATIENT
  Age: 28 Year
  Sex: Female

DRUGS (2)
  1. REMODULIN [Suspect]
     Indication: COR PULMONALE CHRONIC
     Dosage: 64.8 UG/KG (0.045 UG/KG, 1 IN 1 MIN), INTRAVENOUS DRIP
     Route: 041
     Dates: start: 20130816
  2. COUMADIN (WARFARIN SODIUM) [Concomitant]

REACTIONS (2)
  - Device related infection [None]
  - Device related infection [None]
